FAERS Safety Report 13083101 (Version 1)
Quarter: 2017Q1

REPORT INFORMATION
  Report Type: Spontaneous
  Country: US (occurrence: US)
  Receive Date: 20170104
  Receipt Date: 20170104
  Transmission Date: 20170428
  Serious: No
  Sender: FDA-Public Use
  Company Number: US-TAIHO ONCOLOGY INC-EU-2016-03290

PATIENT
  Sex: Male

DRUGS (4)
  1. AMLODIPINE BESILATE [Concomitant]
     Active Substance: AMLODIPINE BESYLATE
     Dosage: NI
  2. GLIPIZIDE. [Concomitant]
     Active Substance: GLIPIZIDE
     Dosage: NI
  3. LONSURF [Suspect]
     Active Substance: TIPIRACIL HYDROCHLORIDE\TRIFLURIDINE
     Indication: COLON CANCER
     Route: 048
     Dates: start: 20160914, end: 2016
  4. CARVEDILOL. [Concomitant]
     Active Substance: CARVEDILOL
     Dosage: NI

REACTIONS (1)
  - Cytopenia [Unknown]

NARRATIVE: CASE EVENT DATE: 2016
